FAERS Safety Report 12317332 (Version 1)
Quarter: 2016Q2

REPORT INFORMATION
  Report Type: Spontaneous
  Country: US (occurrence: None)
  Receive Date: 20160428
  Receipt Date: 20160428
  Transmission Date: 20160815
  Serious: No
  Sender: FDA-Public Use
  Company Number: None

PATIENT
  Sex: Female

DRUGS (1)
  1. HUMALOG [Suspect]
     Active Substance: INSULIN LISPRO

REACTIONS (6)
  - Brain neoplasm [None]
  - Road traffic accident [None]
  - Stress [None]
  - Rash [None]
  - Deafness [None]
  - Back disorder [None]
